FAERS Safety Report 14824292 (Version 1)
Quarter: 2018Q2

REPORT INFORMATION
  Report Type: Spontaneous
  Country: US (occurrence: US)
  Receive Date: 20180429
  Receipt Date: 20180429
  Transmission Date: 20180711
  Serious: No
  Sender: FDA-Public Use
  Company Number: US-JNJFOC-20180407895

PATIENT
  Age: 57 Year
  Sex: Female

DRUGS (6)
  1. MULTIVITAMINS [Concomitant]
     Active Substance: VITAMINS
     Indication: HYSTERECTOMY
     Route: 065
  2. LIPITOR [Concomitant]
     Active Substance: ATORVASTATIN CALCIUM
     Indication: BLOOD CHOLESTEROL INCREASED
     Route: 065
  3. WOMENS ROGAINE UNSCENTED [Suspect]
     Active Substance: MINOXIDIL
     Route: 061
  4. CALCIUM [Concomitant]
     Active Substance: CALCIUM
     Indication: HYSTERECTOMY
     Route: 065
  5. WOMENS ROGAINE UNSCENTED [Suspect]
     Active Substance: MINOXIDIL
     Indication: ALOPECIA
     Dosage: ONE CAPFUL AMOUNT
     Route: 061
     Dates: start: 201802, end: 201802
  6. ESTROGEN [Concomitant]
     Active Substance: ESTROGENS
     Indication: HYSTERECTOMY
     Route: 065

REACTIONS (5)
  - Hair disorder [Recovered/Resolved]
  - Product formulation issue [Unknown]
  - Hair texture abnormal [Recovered/Resolved]
  - Wrong technique in product usage process [Unknown]
  - Overdose [Unknown]

NARRATIVE: CASE EVENT DATE: 201802
